FAERS Safety Report 13040293 (Version 2)
Quarter: 2017Q1

REPORT INFORMATION
  Report Type: Report from Study
  Country: US (occurrence: US)
  Receive Date: 20161219
  Receipt Date: 20170116
  Transmission Date: 20170428
  Serious: Yes (Life-Threatening, Hospitalization)
  Sender: FDA-Public Use
  Company Number: PHEH2016US032390

PATIENT
  Age: 43 Year
  Sex: Male

DRUGS (3)
  1. INSULIN [Suspect]
     Active Substance: INSULIN NOS
     Indication: DIABETES MELLITUS
     Dosage: SLIDING SCALE
     Route: 058
  2. GILENYA [Suspect]
     Active Substance: FINGOLIMOD HYDROCHLORIDE
     Indication: MULTIPLE SCLEROSIS
     Dosage: UNK
     Route: 048
     Dates: start: 20160816
  3. LYRICA [Concomitant]
     Active Substance: PREGABALIN
     Indication: PRODUCT USED FOR UNKNOWN INDICATION
     Dosage: BID
     Route: 065

REACTIONS (9)
  - Gait disturbance [Unknown]
  - Somnolence [Unknown]
  - Hypoglycaemia [Unknown]
  - Fatigue [Unknown]
  - Asthenia [Unknown]
  - Confusional state [Unknown]
  - Mental impairment [Unknown]
  - Fall [Unknown]
  - Loss of consciousness [Unknown]

NARRATIVE: CASE EVENT DATE: 20161122
